FAERS Safety Report 4589622-5 (Version None)
Quarter: 2005Q1

REPORT INFORMATION
  Report Type: 
  Country: None (occurrence: None)
  Receive Date: 20050217
  Receipt Date: 20050208
  Transmission Date: 20050727
  Serious: Yes (Hospitalization, Other)
  Sender: FDA-Public Use
  Company Number: 2005-02-0513

PATIENT
  Age: 57 Year
  Sex: Male

DRUGS (8)
  1. PEG-INTRON [Suspect]
     Indication: HEPATITIS C
     Dosage: 100 MCG QW SUBCUTANEOUS
     Route: 058
     Dates: start: 20041228, end: 20050129
  2. REBETOL [Suspect]
     Indication: HEPATITIS C
     Dosage: 600-400 MG ORAL; 600 MG ORAL; 400 MG ORAL
     Route: 048
     Dates: start: 20041228, end: 20050205
  3. REBETOL [Suspect]
     Indication: HEPATITIS C
     Dosage: 600-400 MG ORAL; 600 MG ORAL; 400 MG ORAL
     Route: 048
     Dates: start: 20050201, end: 20050205
  4. REBETOL [Suspect]
     Indication: HEPATITIS C
     Dosage: 600-400 MG ORAL; 600 MG ORAL; 400 MG ORAL
     Route: 048
     Dates: start: 20041228
  5. AMLODIPINE BESILATE TABLETS [Concomitant]
  6. LISNOPRIL TABLETS [Concomitant]
  7. DIOVAN TABLETS [Concomitant]
  8. GLIMICRON TABLETS [Concomitant]

REACTIONS (3)
  - BLOOD PRESSURE INADEQUATELY CONTROLLED [None]
  - CEREBRAL HAEMORRHAGE [None]
  - MEDICATION ERROR [None]
